FAERS Safety Report 13712726 (Version 1)
Quarter: 2017Q3

REPORT INFORMATION
  Report Type: Spontaneous
  Country: IN (occurrence: IN)
  Receive Date: 20170703
  Receipt Date: 20170703
  Transmission Date: 20171127
  Serious: Yes (Other)
  Sender: FDA-Public Use
  Company Number: IN-SA-2017SA114622

PATIENT
  Age: 65 Year
  Sex: Female
  Weight: 80 kg

DRUGS (3)
  1. TELMISARTAN. [Suspect]
     Active Substance: TELMISARTAN
     Indication: HYPERTENSION
     Route: 048
     Dates: start: 2007
  2. METFORMIN HYDROCHLORIDE/GLICLAZIDE [Suspect]
     Active Substance: GLICLAZIDE\METFORMIN
     Indication: DIABETES MELLITUS
     Route: 048
     Dates: start: 2007
  3. LYXUMIA [Suspect]
     Active Substance: LIXISENATIDE
     Route: 030
     Dates: start: 201702

REACTIONS (6)
  - Hemiparesis [Unknown]
  - Gait inability [Unknown]
  - Dizziness [Unknown]
  - Thalamus haemorrhage [Unknown]
  - Asthenia [Unknown]
  - Facial paralysis [Unknown]

NARRATIVE: CASE EVENT DATE: 20170621
